FAERS Safety Report 14046278 (Version 1)
Quarter: 2017Q4

REPORT INFORMATION
  Report Type: Spontaneous
  Country: US (occurrence: US)
  Receive Date: 20171005
  Receipt Date: 20171005
  Transmission Date: 20180321
  Serious: Yes (Hospitalization)
  Sender: FDA-Public Use
  Company Number: US-INDIVIOR LIMITED-INDV-100070-2017

PATIENT
  Age: 39 Year
  Sex: Male

DRUGS (5)
  1. SUBUTEX [Suspect]
     Active Substance: BUPRENORPHINE HYDROCHLORIDE
     Indication: DRUG USE DISORDER
     Dosage: 8 MG, BID
     Route: 060
  2. SUBUTEX [Suspect]
     Active Substance: BUPRENORPHINE HYDROCHLORIDE
     Dosage: 8 MG, QD
     Route: 060
  3. METHADONE [Suspect]
     Active Substance: METHADONE HYDROCHLORIDE
     Indication: DRUG USE DISORDER
     Dosage: 130 MG, UNK
     Route: 065
  4. ATARAX [Concomitant]
     Active Substance: HYDROXYZINE HYDROCHLORIDE
     Indication: PRODUCT USED FOR UNKNOWN INDICATION
     Dosage: UNK
     Route: 065
  5. ANTIDEPRESSANTS [Concomitant]
     Active Substance: UNSPECIFIED INGREDIENT
     Indication: PRODUCT USED FOR UNKNOWN INDICATION
     Dosage: UNK
     Route: 065

REACTIONS (15)
  - Blood pressure fluctuation [Unknown]
  - Drug withdrawal syndrome [Recovered/Resolved]
  - Anxiety [Unknown]
  - Agitation [Unknown]
  - Road traffic accident [Recovered/Resolved]
  - Tachycardia [Unknown]
  - Confusional state [Unknown]
  - Somnolence [Unknown]
  - Disorientation [Unknown]
  - Musculoskeletal pain [Unknown]
  - Insomnia [Unknown]
  - Drug detoxification [Recovered/Resolved]
  - Product use issue [Recovered/Resolved]
  - Dehydration [Unknown]
  - Intentional underdose [Unknown]

NARRATIVE: CASE EVENT DATE: 201703
